FAERS Safety Report 5703948-0 (Version None)
Quarter: 2008Q2

REPORT INFORMATION
  Report Type: 
  Country: None (occurrence: None)
  Receive Date: 20080409
  Receipt Date: 20080404
  Transmission Date: 20081010
  Serious: Yes (Hospitalization)
  Sender: FDA-Public Use
  Company Number: WAES 0804USA01331

PATIENT
  Age: 55 Year
  Sex: Male

DRUGS (4)
  1. CRIXIVAN [Suspect]
     Indication: LIPODYSTROPHY ACQUIRED
     Dosage: 1600 MG/PO
     Route: 048
     Dates: start: 20030226
  2. FOLAXIN [Concomitant]
  3. [THERAPY UNSPECIFIED] [Concomitant]
  4. PRAVASTATIN SODIUM [Concomitant]

REACTIONS (2)
  - CALCULUS BLADDER [None]
  - ESCHERICHIA URINARY TRACT INFECTION [None]
